FAERS Safety Report 6438038-5 (Version None)
Quarter: 2009Q4

REPORT INFORMATION
  Report Type: 
  Country: None (occurrence: None)
  Receive Date: 20091112
  Receipt Date: 20091029
  Transmission Date: 20100525
  Serious: Yes (Other)
  Sender: FDA-Public Use
  Company Number: US-ASTRAZENECA-2009SE23514

PATIENT
  Age: 78 Year
  Sex: Male
  Weight: 77.1 kg

DRUGS (4)
  1. CRESTOR [Suspect]
     Route: 048
     Dates: start: 19990101
  2. CRESTOR [Suspect]
     Route: 048
     Dates: end: 20091026
  3. ZETIA [Concomitant]
     Dates: end: 20090901
  4. FISH OIL [Concomitant]

REACTIONS (3)
  - CHRONIC LYMPHOCYTIC LEUKAEMIA [None]
  - DRUG DOSE OMISSION [None]
  - PLATELET COUNT DECREASED [None]
